FAERS Safety Report 8510241-X (Version None)
Quarter: 2012Q3

REPORT INFORMATION
  Report Type: 
  Country: None (occurrence: None)
  Receive Date: 20120713
  Receipt Date: 20120713
  Transmission Date: 20120928
  Serious: Yes (Death, Hospitalization, Other)
  Sender: FDA-Public Use
  Company Number: JP-B.I. PHARMACEUTICALS,INC./RIDGEFIELD-2012-BP-15045NB

PATIENT
  Sex: Male
  Weight: 78 kg

DRUGS (8)
  1. LASIX [Concomitant]
     Indication: PROPHYLAXIS
     Dosage: 20 MG
     Route: 048
     Dates: end: 20120703
  2. ACTOS [Concomitant]
     Indication: PROPHYLAXIS
     Dosage: 30 MG
     Route: 048
     Dates: end: 20120703
  3. AMARYL [Concomitant]
     Indication: PROPHYLAXIS
     Dosage: 2 MG
     Route: 048
     Dates: end: 20120703
  4. PHENYTOIN SODIUM CAP [Concomitant]
     Indication: PROPHYLAXIS
     Dosage: 300 MG
     Route: 048
     Dates: end: 20120703
  5. CARVEDILOL [Concomitant]
     Indication: ATRIAL FIBRILLATION
     Dosage: 5 MG
     Route: 048
     Dates: end: 20120703
  6. PRADAXA [Suspect]
     Indication: THROMBOSIS PROPHYLAXIS
     Dosage: 220 MG
     Route: 048
     Dates: start: 20120406, end: 20120702
  7. LAMICTAL [Concomitant]
     Indication: PROPHYLAXIS
     Dosage: 200 MG
     Route: 048
     Dates: end: 20120703
  8. DIOVAN [Concomitant]
     Indication: PROPHYLAXIS
     Dosage: 80 MG
     Route: 048
     Dates: end: 20120703

REACTIONS (3)
  - SMALL INTESTINE CARCINOMA [None]
  - MULTI-ORGAN FAILURE [None]
  - PERITONITIS [None]
